FAERS Safety Report 5916811-7 (Version None)
Quarter: 2008Q4

REPORT INFORMATION
  Report Type: 
  Country: None (occurrence: None)
  Receive Date: 20081013
  Receipt Date: 20081001
  Transmission Date: 20090506
  Serious: Yes (Hospitalization, Other)
  Sender: FDA-Public Use
  Company Number: JP-PFIZER INC-2008083035

PATIENT
  Age: 54 Year
  Sex: Male

DRUGS (3)
  1. SOLU-MEDROL [Suspect]
     Indication: INTERSTITIAL LUNG DISEASE
     Route: 042
     Dates: start: 20071117, end: 20071119
  2. VELCADE [Concomitant]
     Indication: MULTIPLE MYELOMA
     Dates: start: 20071112, end: 20071115
  3. DECADRON [Concomitant]
     Indication: MULTIPLE MYELOMA
     Route: 042
     Dates: start: 20071112, end: 20071115

REACTIONS (1)
  - THROMBOTIC MICROANGIOPATHY [None]
